FAERS Safety Report 7492177-9 (Version None)
Quarter: 2011Q2

REPORT INFORMATION
  Report Type: 
  Country: None (occurrence: None)
  Receive Date: 20110519
  Receipt Date: 20110516
  Transmission Date: 20111010
  Serious: Yes (Death, Other)
  Sender: FDA-Public Use
  Company Number: US-AMGEN-USASP2011025518

PATIENT
  Sex: Male

DRUGS (1)
  1. NPLATE [Suspect]
     Indication: IDIOPATHIC THROMBOCYTOPENIC PURPURA
     Dates: start: 20101223, end: 20110111

REACTIONS (4)
  - RENAL FAILURE ACUTE [None]
  - DRUG INEFFECTIVE [None]
  - APLASTIC ANAEMIA [None]
  - CARDIAC VALVE DISEASE [None]
